FAERS Safety Report 23609860 (Version 1)
Quarter: 2024Q1

REPORT INFORMATION
  Report Type: Report from Study
  Country: IT (occurrence: IT)
  Receive Date: 20240308
  Receipt Date: 20240308
  Transmission Date: 20240410
  Serious: Yes (Other)
  Sender: FDA-Public Use
  Company Number: None

PATIENT
  Age: 72 Year
  Sex: Male

DRUGS (2)
  1. GEMCITABINE [Suspect]
     Active Substance: GEMCITABINE
     Indication: Gastric cancer
     Dates: start: 20230911, end: 20230911
  2. ABRAXANE [Suspect]
     Active Substance: PACLITAXEL
     Indication: Gastric cancer
     Dates: start: 20230911, end: 20230911

REACTIONS (2)
  - Off label use [Recovering/Resolving]
  - Azotaemia [Recovered/Resolved]

NARRATIVE: CASE EVENT DATE: 20230911
